FAERS Safety Report 4712193-7 (Version None)
Quarter: 2005Q3

REPORT INFORMATION
  Report Type: 
  Country: None (occurrence: None)
  Receive Date: 20050712
  Receipt Date: 20050630
  Transmission Date: 20060218
  Serious: Yes (Other)
  Sender: FDA-Public Use
  Company Number: AT-BRISTOL-MYERS SQUIBB COMPANY-13024559

PATIENT
  Age: 23 Year
  Sex: Male
  Weight: 82 kg

DRUGS (2)
  1. ABILIFY [Suspect]
     Dates: start: 20050624, end: 20050625
  2. TRUXAL [Concomitant]
     Dates: start: 20050613

REACTIONS (3)
  - NAUSEA [None]
  - NYSTAGMUS [None]
  - VERTIGO [None]
